FAERS Safety Report 7254168-2 (Version None)
Quarter: 2011Q1

REPORT INFORMATION
  Report Type: 
  Country: None (occurrence: None)
  Receive Date: 20110129
  Receipt Date: 20100212
  Transmission Date: 20110831
  Serious: Yes (Hospitalization, Other)
  Sender: FDA-Public Use
  Company Number: US-ABBOTT-10P-163-0626254-00

PATIENT
  Sex: Female
  Weight: 107.14 kg

DRUGS (9)
  1. UNKNOWN MEDICATION [Concomitant]
     Indication: GASTROOESOPHAGEAL REFLUX DISEASE
  2. HUMIRA [Suspect]
     Route: 058
     Dates: start: 20100210
  3. NORVASC [Concomitant]
     Indication: PRODUCT USED FOR UNKNOWN INDICATION
     Route: 048
  4. CADUET [Concomitant]
     Indication: BLOOD CHOLESTEROL INCREASED
  5. MOISTURIZING LOTION, NAME UNKNOWN [Concomitant]
     Indication: PSORIASIS
     Route: 061
  6. HUMIRA [Suspect]
     Indication: PSORIASIS
     Route: 058
     Dates: start: 20070101, end: 20091001
  7. SINGULAIR [Concomitant]
     Indication: ASTHMA
  8. DIOVAN [Concomitant]
     Indication: PRODUCT USED FOR UNKNOWN INDICATION
     Route: 048
  9. ADVAIR [Concomitant]
     Indication: ASTHMA
     Route: 055

REACTIONS (5)
  - HEART RATE INCREASED [None]
  - ASTHMA [None]
  - ASTHENIA [None]
  - PSORIASIS [None]
  - STAPHYLOCOCCAL INFECTION [None]
